FAERS Safety Report 7501936-5 (Version None)
Quarter: 2011Q2

REPORT INFORMATION
  Report Type: 
  Country: None (occurrence: None)
  Receive Date: 20110525
  Receipt Date: 20110523
  Transmission Date: 20111010
  Serious: No
  Sender: FDA-Public Use
  Company Number: US-PFIZER INC-2011111326

PATIENT
  Sex: Male

DRUGS (2)
  1. NICOTROL [Suspect]
     Indication: SMOKING CESSATION THERAPY
     Dosage: 15 DOSES A DAY
     Route: 045
     Dates: start: 20110430, end: 20110523
  2. CLOZAPINE [Concomitant]
     Dosage: UNK

REACTIONS (1)
  - INCREASED APPETITE [None]
